FAERS Safety Report 14992950 (Version 1)
Quarter: 2018Q2

REPORT INFORMATION
  Report Type: Other
  Country: AU (occurrence: AU)
  Receive Date: 20180610
  Receipt Date: 20180610
  Transmission Date: 20180711
  Serious: Yes (Other)
  Sender: FDA-Public Use
  Company Number: AU-DEXPHARM-20180376

PATIENT

DRUGS (1)
  1. AQUEOUS CHLORHEXIDINE 2% [Suspect]
     Active Substance: CHLORHEXIDINE ACETATE

REACTIONS (2)
  - Erythema [Unknown]
  - Skin disorder [Unknown]
